FAERS Safety Report 22230502 (Version 1)
Quarter: 2023Q2

REPORT INFORMATION
  Report Type: Spontaneous
  Country: GB (occurrence: GB)
  Receive Date: 20230420
  Receipt Date: 20230420
  Transmission Date: 20230722
  Serious: Yes (Life-Threatening, Hospitalization, Disabling)
  Sender: FDA-Public Use
  Company Number: None

PATIENT
  Age: 89 Year
  Sex: Female
  Weight: 41 kg

DRUGS (1)
  1. LETROZOLE [Suspect]
     Active Substance: LETROZOLE
     Indication: Breast cancer
     Dosage: ONCE A DAY
     Dates: end: 20230301

REACTIONS (10)
  - Heart rate increased [Unknown]
  - Swelling [Unknown]
  - Pain in extremity [Unknown]
  - Contusion [Unknown]
  - Dizziness [Unknown]
  - Blister [Unknown]
  - Dyspnoea [Unknown]
  - Lethargy [Unknown]
  - Disorientation [Unknown]
  - Cardiac failure [Unknown]

NARRATIVE: CASE EVENT DATE: 20220901
